FAERS Safety Report 23815492 (Version 1)
Quarter: 2024Q2

REPORT INFORMATION
  Report Type: Spontaneous
  Country: US (occurrence: None)
  Receive Date: 20240502
  Receipt Date: 20240502
  Transmission Date: 20240715
  Serious: Yes (Life-Threatening)
  Sender: FDA-Public Use
  Company Number: None

PATIENT
  Age: 38 Year
  Sex: Female
  Weight: 67 kg

DRUGS (1)
  1. FERUMOXYTOL [Suspect]
     Active Substance: FERUMOXYTOL
     Indication: Iron deficiency anaemia
     Dosage: 510 MG WEEKLY X 2 DOSES INTRAVENOUS?
     Route: 042

REACTIONS (3)
  - Anaphylactic reaction [None]
  - Unresponsive to stimuli [None]
  - Infusion related reaction [None]

NARRATIVE: CASE EVENT DATE: 20240429
